FAERS Safety Report 13978874 (Version 1)
Quarter: 2017Q3

REPORT INFORMATION
  Report Type: Spontaneous
  Country: FR (occurrence: FR)
  Receive Date: 20170915
  Receipt Date: 20170915
  Transmission Date: 20171128
  Serious: Yes (Other)
  Sender: FDA-Public Use
  Company Number: FR-MERCK KGAA-2026492

PATIENT
  Age: 64 Year
  Sex: Female

DRUGS (4)
  1. MEDIATOR [Concomitant]
     Active Substance: BENFLUOREX
     Route: 048
  2. PROZAC [Concomitant]
     Active Substance: FLUOXETINE HYDROCHLORIDE
     Route: 048
  3. COTAREG (CO-DIOVAN) [Concomitant]
     Route: 048
  4. NOVOTHYROX [Suspect]
     Active Substance: LEVOTHYROXINE SODIUM
     Indication: THYROIDECTOMY
     Route: 048
     Dates: start: 20080823

REACTIONS (10)
  - Suicidal ideation [Not Recovered/Not Resolved]
  - Irritability [Not Recovered/Not Resolved]
  - Vomiting [Not Recovered/Not Resolved]
  - Headache [Not Recovered/Not Resolved]
  - Social fear [Not Recovered/Not Resolved]
  - Fatigue [Not Recovered/Not Resolved]
  - Phobia [Not Recovered/Not Resolved]
  - Insomnia [Not Recovered/Not Resolved]
  - Nausea [Not Recovered/Not Resolved]
  - Weight increased [Not Recovered/Not Resolved]
